FAERS Safety Report 8640357 (Version 2)
Quarter: 2013Q2

REPORT INFORMATION
  Report Type: Report from Study
  Country: US (occurrence: US)
  Receive Date: 20120628
  Receipt Date: 20130627
  Transmission Date: 20140414
  Serious: Yes (Other)
  Sender: FDA-Public Use
  Company Number: US-MYLANLABS-2012S1008192

PATIENT
  Age: 16 Year
  Sex: Female

DRUGS (8)
  1. CLOZAPINE TABLETS [Suspect]
     Dosage: 25MG QAM, 50MG HS
     Route: 048
     Dates: end: 20120413
  2. OMEPRAZOLE [Concomitant]
     Route: 048
  3. DEPAKOTE ER [Concomitant]
     Route: 048
  4. PRAZOSIN [Concomitant]
     Route: 048
  5. VYVANSE [Concomitant]
     Route: 048
  6. SEPTRA DS [Concomitant]
     Dosage: FOR 10 DAYS
     Route: 048
     Dates: start: 20120411
  7. RANITIDINE [Concomitant]
     Route: 048
  8. MIRALAX /00754501/ [Concomitant]

REACTIONS (1)
  - Granulocytopenia [Not Recovered/Not Resolved]
